FAERS Safety Report 23281451 (Version 1)
Quarter: 2023Q4

REPORT INFORMATION
  Report Type: Report from Study
  Country: US (occurrence: US)
  Receive Date: 20231211
  Receipt Date: 20231211
  Transmission Date: 20240109
  Serious: Yes (Other)
  Sender: FDA-Public Use
  Company Number: US-002147023-NVSC2019US017802

PATIENT
  Sex: Female
  Weight: 95.238 kg

DRUGS (4)
  1. TREPROSTINIL [Suspect]
     Active Substance: TREPROSTINIL
     Indication: Pulmonary arterial hypertension
     Dosage: UNK UNK, CONT (136 NG/KG/MIN CONTINUOUS)
     Route: 042
     Dates: start: 20190423
  2. TREPROSTINIL [Suspect]
     Active Substance: TREPROSTINIL
     Dosage: UNK UNK, CONT (136 NG/KG/MIN CONTINUOUS)
     Route: 042
     Dates: start: 20190423
  3. TREPROSTINIL [Suspect]
     Active Substance: TREPROSTINIL
     Dosage: UNK UNK, CONT (136 NG/KG/MIN CONTINUOUS)
     Route: 042
     Dates: start: 20190423
  4. TREPROSTINIL [Suspect]
     Active Substance: TREPROSTINIL
     Dosage: UNK UNK, CONT (136 NG/KG/MIN CONTINUOUS)
     Route: 042
     Dates: start: 20190423

REACTIONS (8)
  - SARS-CoV-2 test positive [Unknown]
  - Cholelithiasis [Unknown]
  - Device issue [Unknown]
  - Complication associated with device [Unknown]
  - Dyspnoea [Unknown]
  - Nasopharyngitis [Unknown]
  - Catheter site haemorrhage [Unknown]
  - Catheter site bruise [Unknown]
